FAERS Safety Report 13611619 (Version 1)
Quarter: 2017Q2

REPORT INFORMATION
  Report Type: Spontaneous
  Country: AU (occurrence: AU)
  Receive Date: 20170605
  Receipt Date: 20170605
  Transmission Date: 20170830
  Serious: Yes (Life-Threatening, Other)
  Sender: FDA-Public Use
  Company Number: AU-JUBILANT CADISTA PHARMACEUTICALS-2017JUB00171

PATIENT
  Age: 15 Year
  Sex: Male
  Weight: 70 kg

DRUGS (11)
  1. AMLODIPINE [Suspect]
     Active Substance: AMLODIPINE BESYLATE
     Dosage: 290 MG, UNK
     Route: 048
  2. METHYLENE BLUE. [Suspect]
     Active Substance: METHYLENE BLUE
     Dosage: 1.5 MG/KG/HR
     Route: 065
  3. DESVENLAFAXINE. [Suspect]
     Active Substance: DESVENLAFAXINE
     Dosage: 5.6 G, ONCE
     Route: 048
  4. VENLAFAXINE [Suspect]
     Active Substance: VENLAFAXINE HYDROCHLORIDE
     Dosage: 1.05 G, ONCE
     Route: 048
  5. RAMIPRIL. [Suspect]
     Active Substance: RAMIPRIL
     Dosage: 100 MG, ONCE
     Route: 048
  6. LITHIUM. [Suspect]
     Active Substance: LITHIUM
     Route: 048
  7. PROMETHAZINE [Suspect]
     Active Substance: PROMETHAZINE\PROMETHAZINE HYDROCHLORIDE
     Dosage: 500 MG, ONCE
     Route: 048
  8. METHYLENE BLUE. [Suspect]
     Active Substance: METHYLENE BLUE
     Dosage: 0.75 MG/KG/HR
     Route: 065
  9. METHYLENE BLUE. [Suspect]
     Active Substance: METHYLENE BLUE
     Indication: OVERDOSE
     Dosage: 1.5 MG/KG, ONCE
     Route: 065
  10. FLUOXETINE [Suspect]
     Active Substance: FLUOXETINE HYDROCHLORIDE
     Dosage: 560 MG, ONCE
     Route: 048
  11. QUETIAPINE. [Suspect]
     Active Substance: QUETIAPINE
     Dosage: 13.5 G, ONCE
     Route: 048

REACTIONS (4)
  - Serotonin syndrome [Recovered/Resolved]
  - Overdose [Recovered/Resolved]
  - Pneumonia [Recovered/Resolved]
  - Shock [Recovered/Resolved]
